FAERS Safety Report 7409463-0 (Version None)
Quarter: 2011Q2

REPORT INFORMATION
  Report Type: 
  Country: None (occurrence: None)
  Receive Date: 20110412
  Receipt Date: 20110407
  Transmission Date: 20111010
  Serious: Yes (Death, Hospitalization, Other)
  Sender: FDA-Public Use
  Company Number: PHHO2011US04852

PATIENT
  Sex: Female
  Weight: 105 kg

DRUGS (16)
  1. CETUXIMAB [Concomitant]
     Indication: COLORECTAL CANCER METASTATIC
     Dosage: UNK
     Route: 042
     Dates: start: 20110307, end: 20110307
  2. OXYCODONE HYDROCHLORIDE [Concomitant]
     Dosage: 15 MG/L, UNK
     Dates: start: 20110307, end: 20110313
  3. MORPHINE SULFATE [Concomitant]
     Dosage: 4 MG, PRN
     Route: 042
     Dates: start: 20110313
  4. MORPHINE SULFATE [Concomitant]
     Dosage: 30 MG, 12 HRS
     Route: 048
  5. POTASSIUM CHLORIDE/SODIUM CHLORIDE [Concomitant]
     Dosage: 1000ML @ 125 ML/ HR
     Dates: start: 20110312
  6. LOVENOX [Concomitant]
     Dosage: 40 MG, 24 HRS
     Dates: start: 20110312, end: 20110313
  7. LOPERAMIDE [Concomitant]
     Dosage: 2 MG, PRN
     Dates: start: 20110307
  8. AMBIEN [Concomitant]
     Dosage: 10 MG, QD
     Dates: start: 20110312
  9. WARFARIN SODIUM [Concomitant]
     Indication: ANTICOAGULANT THERAPY
     Dosage: 2 MG, QD
     Dates: start: 20110307, end: 20110312
  10. LORAZEPAM [Concomitant]
     Dosage: 1 MG, UNK
     Dates: start: 20110307
  11. PROMETHAZINE HYDROCHLORIDE [Concomitant]
     Dosage: 25 MG, QMO
     Dates: start: 20110307
  12. FENTANYL [Concomitant]
     Indication: PAIN
  13. AFINITOR [Suspect]
     Indication: COLORECTAL CANCER METASTATIC
     Dosage: 5 MG, QD
     Route: 048
     Dates: start: 20110307, end: 20110311
  14. ZOTRAN [Concomitant]
     Dosage: 25 MG, PRN
     Route: 042
     Dates: start: 20110312
  15. IRINOTECAN [Suspect]
     Indication: COLORECTAL CANCER METASTATIC
     Dosage: 260 MG, DYS 1 AND 8
     Route: 042
     Dates: start: 20110307, end: 20110307
  16. LOMOTIL [Concomitant]
     Dosage: 10 MG, QMO
     Dates: start: 20110307

REACTIONS (6)
  - NAUSEA [None]
  - STOMATITIS [None]
  - INTESTINAL OBSTRUCTION [None]
  - VOMITING [None]
  - ANAEMIA [None]
  - DEHYDRATION [None]
